FAERS Safety Report 25239663 (Version 1)
Quarter: 2025Q2

REPORT INFORMATION
  Report Type: Spontaneous
  Country: US (occurrence: None)
  Receive Date: 20250425
  Receipt Date: 20250425
  Transmission Date: 20250716
  Serious: Yes (Life-Threatening)
  Sender: FDA-CTU
  Company Number: None

PATIENT
  Age: 92 Year
  Sex: Female
  Weight: 56.7 kg

DRUGS (1)
  1. FERAHEME [Suspect]
     Active Substance: FERUMOXYTOL NON-STOICHIOMETRIC MAGNETITE
     Indication: Nephrogenic anaemia
     Route: 042
     Dates: start: 20250421, end: 20250421

REACTIONS (6)
  - Dyspnoea [None]
  - Infusion related reaction [None]
  - Abdominal distension [None]
  - Chest discomfort [None]
  - Flushing [None]
  - Drug hypersensitivity [None]

NARRATIVE: CASE EVENT DATE: 20250421
